FAERS Safety Report 12473815 (Version 2)
Quarter: 2016Q2

REPORT INFORMATION
  Report Type: Report from Study
  Country: SE (occurrence: SE)
  Receive Date: 20160616
  Receipt Date: 20160630
  Transmission Date: 20160815
  Serious: Yes (Hospitalization)
  Sender: FDA-Public Use
  Company Number: SE-ABBVIE-16P-150-1650581-00

PATIENT
  Age: 61 Year
  Sex: Male

DRUGS (1)
  1. DUODOPA [Suspect]
     Active Substance: CARBIDOPA\LEVODOPA
     Indication: PARKINSON^S DISEASE
     Dosage: CD DAY: 6.2ML/H; CD NIGHT: 4.2ML/H
     Route: 050
     Dates: start: 20100201

REACTIONS (4)
  - Incorrect route of drug administration [Not Recovered/Not Resolved]
  - Device dislocation [Unknown]
  - Gait disturbance [Not Recovered/Not Resolved]
  - Parkinson^s disease [Not Recovered/Not Resolved]

NARRATIVE: CASE EVENT DATE: 201603
